FAERS Safety Report 7653027-0 (Version None)
Quarter: 2011Q3

REPORT INFORMATION
  Report Type: 
  Country: None (occurrence: None)
  Receive Date: 20110803
  Receipt Date: 20110729
  Transmission Date: 20111222
  Serious: Yes (Hospitalization, Other)
  Sender: FDA-Public Use
  Company Number: FR-ROXANE LABORATORIES, INC.-2011-RO-01083RO

PATIENT
  Age: 73 Year
  Sex: Male

DRUGS (4)
  1. AZATHIOPRINE [Suspect]
     Dosage: 50 MG
  2. AZATHIOPRINE [Suspect]
     Indication: ARTHRITIS
     Dosage: 100 MG
  3. CEFTRIAXONE [Suspect]
     Indication: WHIPPLE'S DISEASE
  4. HYDROXYCHLOROQUINE SULFATE [Suspect]
     Indication: WHIPPLE'S DISEASE

REACTIONS (2)
  - IMMUNE RECONSTITUTION SYNDROME [None]
  - WHIPPLE'S DISEASE [None]
